FAERS Safety Report 6448378-1 (Version None)
Quarter: 2009Q4

REPORT INFORMATION
  Report Type: 
  Country: None (occurrence: None)
  Receive Date: 20091120
  Receipt Date: 20091109
  Transmission Date: 20100525
  Serious: Yes (Other)
  Sender: FDA-Public Use
  Company Number: PHHY2009BR49478

PATIENT
  Age: 45 Year
  Sex: Female

DRUGS (1)
  1. TEGRETOL [Suspect]
     Dosage: 200 MG, UNK
     Dates: start: 20020101

REACTIONS (3)
  - BLOOD OESTROGEN INCREASED [None]
  - BREAST CANCER [None]
  - BREAST OPERATION [None]
